FAERS Safety Report 10358692 (Version 4)
Quarter: 2015Q2

REPORT INFORMATION
  Report Type: Spontaneous
  Country: IT (occurrence: IT)
  Receive Date: 20140804
  Receipt Date: 20150626
  Transmission Date: 20150821
  Serious: Yes (Other)
  Sender: FDA-Public Use
  Company Number: IT-UCBSA-2014007153

PATIENT
  Age: 50 Year
  Sex: Male

DRUGS (7)
  1. ATORVASTATIN [Suspect]
     Active Substance: ATORVASTATIN
     Dosage: 40 MG, ONCE DAILY (QD)
     Route: 048
     Dates: start: 20140304, end: 20140606
  2. CANRENONE [Concomitant]
     Active Substance: CANRENONE
     Dosage: 1 DF, 3X/DAY (TID)
  3. GLYCERYL TRINITRATE [Suspect]
     Active Substance: NITROGLYCERIN
     Dosage: 1 DF, ONCE DAILY (QD)
     Route: 003
     Dates: start: 20140304, end: 20140606
  4. CARVEDILOL. [Concomitant]
     Active Substance: CARVEDILOL
     Dosage: 0.5 DF, 2X/DAY (BID)
  5. CLOPIDOGREL [Concomitant]
     Active Substance: CLOPIDOGREL BISULFATE
     Dosage: 1 DF, ONCE DAILY (QD)
  6. ACETYLSALICYLIC ACID [Concomitant]
     Active Substance: ASPIRIN
     Dosage: 1 DF, ONCE DAILY (QD)
  7. FUROSEMIDE. [Concomitant]
     Active Substance: FUROSEMIDE
     Dosage: 3 DF, 3X/DAY (TID)

REACTIONS (3)
  - Headache [Not Recovered/Not Resolved]
  - Chest pain [Unknown]
  - Myocardial necrosis marker increased [Not Recovered/Not Resolved]

NARRATIVE: CASE EVENT DATE: 20140606
